FAERS Safety Report 20611684 (Version 1)
Quarter: 2022Q1

REPORT INFORMATION
  Report Type: Spontaneous
  Country: US (occurrence: US)
  Receive Date: 20220318
  Receipt Date: 20220318
  Transmission Date: 20220423
  Serious: No
  Sender: FDA-Public Use
  Company Number: US-GW PHARMA-202203USGW01335

PATIENT
  Sex: Female
  Weight: 25.85 kg

DRUGS (3)
  1. EPIDIOLEX [Suspect]
     Active Substance: CANNABIDIOL
     Indication: Epilepsy
     Dosage: 3.09 MG/KG/DAY, 40 MILLIGRAM, BID
     Route: 048
     Dates: start: 20220217, end: 20220224
  2. EPIDIOLEX [Suspect]
     Active Substance: CANNABIDIOL
     Dosage: 6.19 MG/KG/DAY, 80 MILLIGRAM, BID
     Route: 048
     Dates: start: 20220225, end: 20220304
  3. EPIDIOLEX [Suspect]
     Active Substance: CANNABIDIOL
     Dosage: 9.28 MG/KG/DAY, 120 MILLIGRAM, BID
     Route: 048
     Dates: start: 20220305

REACTIONS (3)
  - Skin irritation [Unknown]
  - Rash [Unknown]
  - Product use in unapproved indication [Unknown]

NARRATIVE: CASE EVENT DATE: 20220101
